FAERS Safety Report 5573416-8 (Version None)
Quarter: 2007Q4

REPORT INFORMATION
  Report Type: 
  Country: None (occurrence: None)
  Receive Date: 20071226
  Receipt Date: 20071211
  Transmission Date: 20080405
  Serious: Yes (Hospitalization)
  Sender: FDA-Public Use
  Company Number: SG-JNJFOC-20071205233

PATIENT
  Age: 37 Year
  Sex: Female
  Weight: 65 kg

DRUGS (12)
  1. TRAMADOL HCL [Suspect]
     Indication: PAIN
     Route: 065
  2. MORPHINE [Suspect]
     Indication: ANALGESIA
     Route: 065
  3. FENTANYL [Concomitant]
     Indication: ANAESTHESIA
     Route: 065
  4. PROPOFOL [Concomitant]
     Indication: ANAESTHESIA
     Route: 065
  5. LIGNOCAINE [Concomitant]
     Indication: ANAESTHESIA
     Route: 065
  6. ATRACURIUM [Concomitant]
     Indication: ANAESTHESIA
     Route: 065
  7. NITROUS OXIDE [Concomitant]
     Indication: ANAESTHESIA
     Route: 065
  8. OXYGEN [Concomitant]
     Indication: ANAESTHESIA
     Route: 065
  9. ISOFLURANE [Concomitant]
     Indication: ANAESTHESIA
     Route: 065
  10. METOCLOPRAMIDE [Concomitant]
     Indication: ANAESTHESIA
     Route: 065
  11. ATROPINE [Concomitant]
     Indication: ANAESTHESIA
     Route: 065
  12. NEOSTIGMINE [Concomitant]
     Indication: ANAESTHESIA
     Route: 065

REACTIONS (4)
  - COUGH [None]
  - PNEUMONIA ASPIRATION [None]
  - PYREXIA [None]
  - VOMITING [None]
